FAERS Safety Report 10664091 (Version 2)
Quarter: 2014Q4

REPORT INFORMATION
  Report Type: Report from Study
  Country: BR (occurrence: BR)
  Receive Date: 20141219
  Receipt Date: 20141219
  Transmission Date: 20150529
  Serious: Yes (Hospitalization)
  Sender: FDA-Public Use
  Company Number: PHHY2014BR057510

PATIENT
  Sex: Female

DRUGS (10)
  1. PREDNISONA [Concomitant]
     Active Substance: PREDNISONE
     Indication: BONE PAIN
     Dosage: 1.5 DF (1 TABLET IN THE MORNING, HALF TABLET AT NIGHT)
     Route: 065
  2. SERTRALINE [Concomitant]
     Active Substance: SERTRALINE HYDROCHLORIDE
     Indication: SEDATIVE THERAPY
     Dosage: UNK
     Route: 065
  3. PROPRANOLOL [Concomitant]
     Active Substance: PROPRANOLOL\PROPRANOLOL HYDROCHLORIDE
     Dosage: 11.5 DF (6 TABLETS IN THE MORNING, 5 AND A HALF TABLETS AT NIGHT)
     Route: 065
  4. AMLODIPINE [Concomitant]
     Active Substance: AMLODIPINE BESYLATE
     Indication: HYPERTENSION
     Dosage: 2 DF, QD
     Route: 065
  5. SANDOSTATIN LAR DEPOT [Suspect]
     Active Substance: OCTREOTIDE ACETATE
     Indication: ACROMEGALY
     Dosage: 30 MG, EVERY 28 DAYS
     Route: 065
  6. PREDNISONA [Concomitant]
     Active Substance: PREDNISONE
     Indication: PAIN
     Dosage: 1 DF, BID (1 TABLET/MORNING, 1 TABLET/NIGHT)
     Route: 065
  7. VASOPRIL [Concomitant]
     Active Substance: FOSINOPRIL
     Indication: HYPERTENSION
     Dosage: 1 DF, BID (1 TABLET/MORNING, 1 TABLET/NIGHT)
     Route: 065
  8. PROPRANOLOL [Concomitant]
     Active Substance: PROPRANOLOL\PROPRANOLOL HYDROCHLORIDE
     Indication: HYPERTENSION
     Dosage: 1 DF, BID
     Route: 065
  9. PURAN [Concomitant]
     Active Substance: LEVOTHYROXINE SODIUM
     Indication: HYPERTHYROIDISM
     Dosage: 1 DF, QD
     Route: 065
  10. LODIPIL [Concomitant]
     Indication: HYPERTENSION
     Dosage: 1 DF, BID (1 TABLET/MORNING, 1 TABLET/NIGHT)
     Route: 065

REACTIONS (7)
  - Nephrolithiasis [Unknown]
  - Renal colic [Recovering/Resolving]
  - Swelling [Recovering/Resolving]
  - Memory impairment [Not Recovered/Not Resolved]
  - Bone deformity [Not Recovered/Not Resolved]
  - Malaise [Unknown]
  - Weight decreased [Unknown]
